FAERS Safety Report 17060629 (Version 2)
Quarter: 2019Q4

REPORT INFORMATION
  Report Type: Report from Study
  Country: US (occurrence: US)
  Receive Date: 20191121
  Receipt Date: 20191204
  Transmission Date: 20200122
  Serious: Yes (Hospitalization, Other)
  Sender: FDA-Public Use
  Company Number: NVSC2019US032057

PATIENT
  Age: 77 Year
  Sex: Female

DRUGS (2)
  1. KYMRIAH [Suspect]
     Active Substance: TISAGENLECLEUCEL
     Indication: ACUTE LYMPHOCYTIC LEUKAEMIA
     Dosage: UNK
     Route: 042
     Dates: start: 20141007, end: 20141007
  2. IMMUNOGLOBULIN I.V [Concomitant]
     Active Substance: HUMAN IMMUNOGLOBULIN G
     Indication: HYPOGAMMAGLOBULINAEMIA
     Dosage: IV, EVERY 10 WEEKS
     Route: 065
     Dates: start: 2014

REACTIONS (3)
  - Pneumonia [Recovered/Resolved]
  - Lung squamous cell carcinoma stage II [Unknown]
  - Second primary malignancy [Unknown]

NARRATIVE: CASE EVENT DATE: 20191015
